FAERS Safety Report 7796688-8 (Version None)
Quarter: 2011Q4

REPORT INFORMATION
  Report Type: 
  Country: None (occurrence: None)
  Receive Date: 20111005
  Receipt Date: 20110923
  Transmission Date: 20120403
  Serious: Yes (Other)
  Sender: FDA-Public Use
  Company Number: NL-AMGEN-NLDSP2011044564

PATIENT
  Age: 57 Year
  Sex: Female

DRUGS (15)
  1. PANTOZOL                           /01263202/ [Concomitant]
  2. EFFEXOR [Concomitant]
  3. METHOTREXATE SODIUM [Concomitant]
  4. OXYCODONE HCL [Concomitant]
  5. PLAQUENIL [Concomitant]
  6. METFORMIN HCL [Concomitant]
  7. SIMVASTATIN [Concomitant]
  8. INSULIN [Concomitant]
  9. ASCAL                              /00002702/ [Concomitant]
  10. FOLIC ACID [Concomitant]
     Dosage: UNK
  11. PRAMIPEXOLE DIHYDROCHLORIDE [Concomitant]
     Dosage: UNK
  12. FENTANYL [Concomitant]
  13. ENBREL [Suspect]
     Indication: RHEUMATOID ARTHRITIS
     Dosage: 50 MG, WEEKLY
     Dates: start: 20110315, end: 20110701
  14. PANADOL                            /00020001/ [Concomitant]
  15. LOSARTAN POTASSIUM AND HYDROCHLOROTHIAZIDE [Concomitant]

REACTIONS (1)
  - OPEN WOUND [None]
